FAERS Safety Report 5445515-2 (Version None)
Quarter: 2007Q3

REPORT INFORMATION
  Report Type: 
  Country: None (occurrence: None)
  Receive Date: 20070906
  Receipt Date: 20070831
  Transmission Date: 20080115
  Serious: Yes (Other)
  Sender: FDA-Public Use
  Company Number: NL-BOEHRINGER INGELHEIM PHARMACEUTICALS, INC.-2007-DE-05177GD

PATIENT
  Age: 47 Year
  Sex: Male

DRUGS (3)
  1. NEVIRAPINE [Suspect]
     Indication: HIV INFECTION
  2. NEVIRAPINE [Suspect]
  3. EMTRICITABINE/TENOFOVIR [Concomitant]
     Indication: HIV INFECTION
     Dosage: EMTRICITABINE/TENOFOVIR 200/245 MG

REACTIONS (6)
  - BLOOD LACTATE DEHYDROGENASE INCREASED [None]
  - CHEST X-RAY ABNORMAL [None]
  - COUGH [None]
  - DYSPNOEA [None]
  - PYREXIA [None]
  - RASH [None]
